FAERS Safety Report 17662327 (Version 1)
Quarter: 2020Q2

REPORT INFORMATION
  Report Type: Spontaneous
  Country: US (occurrence: US)
  Receive Date: 20200413
  Receipt Date: 20200413
  Transmission Date: 20200713
  Serious: No
  Sender: FDA-Public Use
  Company Number: US-CELGENEUS-USA-20200401931

PATIENT
  Age: 62 Year
  Sex: Male
  Weight: 120 kg

DRUGS (2)
  1. POMALIDOMIDE [Suspect]
     Active Substance: POMALIDOMIDE
     Dosage: 2 MILLIGRAM
     Route: 048
     Dates: start: 202002
  2. POMALIDOMIDE [Suspect]
     Active Substance: POMALIDOMIDE
     Indication: PLASMA CELL MYELOMA
     Dosage: 4 MILLIGRAM
     Route: 048
     Dates: start: 201905

REACTIONS (4)
  - Rash [Unknown]
  - Discomfort [Unknown]
  - Scrotal swelling [Unknown]
  - Testicular atrophy [Unknown]

NARRATIVE: CASE EVENT DATE: 201905
